FAERS Safety Report 4687159-6 (Version None)
Quarter: 2005Q2

REPORT INFORMATION
  Report Type: 
  Country: None (occurrence: None)
  Receive Date: 20050609
  Receipt Date: 20050527
  Transmission Date: 20051028
  Serious: Yes (Other)
  Sender: FDA-Public Use
  Company Number: 200510992BWH

PATIENT
  Age: 61 Year
  Sex: Male

DRUGS (6)
  1. LEVITRA [Suspect]
     Indication: ERECTILE DYSFUNCTION
     Dosage: SEE IMAGE
     Route: 048
     Dates: start: 20050201
  2. LEVITRA [Suspect]
     Indication: ERECTILE DYSFUNCTION
     Dosage: SEE IMAGE
     Route: 048
     Dates: start: 20050522
  3. LEVITRA [Suspect]
     Indication: ERECTILE DYSFUNCTION
     Dosage: SEE IMAGE
     Route: 048
     Dates: start: 20050523
  4. LEVITRA [Suspect]
     Indication: ERECTILE DYSFUNCTION
     Dosage: SEE IMAGE
     Route: 048
     Dates: start: 20050525
  5. LEVITRA [Suspect]
     Indication: ERECTILE DYSFUNCTION
     Dosage: SEE IMAGE
     Route: 048
     Dates: start: 20050529
  6. ASPIRIN [Concomitant]

REACTIONS (7)
  - BLINDNESS TRANSIENT [None]
  - DRUG INEFFECTIVE [None]
  - OPTIC ISCHAEMIC NEUROPATHY [None]
  - PHOTOPSIA [None]
  - RETINAL MIGRAINE [None]
  - SCINTILLATING SCOTOMA [None]
  - VITREOUS DETACHMENT [None]
